FAERS Safety Report 8231687-3 (Version None)
Quarter: 2012Q1

REPORT INFORMATION
  Report Type: 
  Country: None (occurrence: None)
  Receive Date: 20120323
  Receipt Date: 20120312
  Transmission Date: 20120608
  Serious: Yes (Hospitalization)
  Sender: FDA-Public Use
  Company Number: JP-JHP PHARMACEUTICALS, LLC-JHP201200107

PATIENT
  Sex: Female
  Weight: 48.4 kg

DRUGS (12)
  1. TRIHEXYPHENIDYL HCL [Concomitant]
     Indication: PARKINSONISM
  2. SILECE [Concomitant]
     Indication: INSOMNIA
     Dosage: UNK
     Dates: start: 20120103, end: 20120108
  3. CEFOPERAZONE SODIUM [Concomitant]
     Indication: BRONCHITIS
     Dosage: UNK
     Dates: start: 20111230, end: 20120103
  4. RISPERDAL [Concomitant]
     Indication: SCHIZOPHRENIA
     Dosage: 20 MG, BID
     Route: 042
     Dates: end: 20111230
  5. PHENOBARBITAL TAB [Concomitant]
     Indication: INSOMNIA
     Dosage: UNK
     Dates: start: 20111230, end: 20120108
  6. DANTRIUM [Suspect]
     Dosage: 20 MG, BID
     Route: 041
     Dates: start: 20120109, end: 20120109
  7. DANTRIUM [Suspect]
     Dosage: 20 MG, QD
     Route: 041
     Dates: start: 20120108, end: 20120108
  8. DANTRIUM [Suspect]
     Dosage: 20 MG, TID
     Route: 041
     Dates: start: 20120110, end: 20120110
  9. DANTRIUM [Suspect]
     Dosage: 25 MG, QD
     Route: 048
     Dates: start: 20120102, end: 20120102
  10. TRANSFUSION [Concomitant]
     Dosage: UNK
     Dates: start: 20111230
  11. DANTRIUM [Suspect]
     Indication: NEUROLEPTIC MALIGNANT SYNDROME
     Dosage: 20 MG, BID
     Route: 041
     Dates: start: 20111230, end: 20120105
  12. DANTRIUM [Suspect]
     Dosage: 25 MG, TID
     Route: 048
     Dates: start: 20120106, end: 20120108

REACTIONS (2)
  - PYREXIA [None]
  - DRUG INEFFECTIVE [None]
